FAERS Safety Report 7242103-2 (Version None)
Quarter: 2011Q1

REPORT INFORMATION
  Report Type: 
  Country: None (occurrence: None)
  Receive Date: 20110118
  Receipt Date: 20110105
  Transmission Date: 20110831
  Serious: Yes (Disabling)
  Sender: FDA-Public Use
  Company Number: 2011MA000089

PATIENT
  Sex: Female

DRUGS (1)
  1. METOCLOPRAMIDE [Suspect]
     Indication: GASTROOESOPHAGEAL REFLUX DISEASE
     Dosage: 10 MG; QID; PO
     Route: 048
     Dates: start: 20081101

REACTIONS (10)
  - DROOLING [None]
  - DRY MOUTH [None]
  - EMOTIONAL DISTRESS [None]
  - ANHEDONIA [None]
  - DYSARTHRIA [None]
  - EXTRAPYRAMIDAL DISORDER [None]
  - NERVOUS SYSTEM DISORDER [None]
  - TARDIVE DYSKINESIA [None]
  - SPEECH DISORDER [None]
  - ECONOMIC PROBLEM [None]
